FAERS Safety Report 4501829-1 (Version None)
Quarter: 2004Q4

REPORT INFORMATION
  Report Type: 
  Country: None (occurrence: None)
  Receive Date: 20041115
  Receipt Date: 20041115
  Transmission Date: 20050328
  Serious: Yes (Life-Threatening, Hospitalization)
  Sender: FDA-Public Use
  Company Number: None

PATIENT
  Age: 79 Year
  Sex: Male
  Weight: 96.2 kg

DRUGS (11)
  1. WARFARIN [Suspect]
  2. ACETAMINOPHEN [Concomitant]
  3. FLUOXETINE [Concomitant]
  4. FUROSEMIDE [Concomitant]
  5. LISINOPRIL [Concomitant]
  6. GABAPENTIN [Concomitant]
  7. SIMVASTATIN [Concomitant]
  8. ACETAMINOPHEN W/ CODEINE [Concomitant]
  9. POTASSIUM CHLORIDE [Concomitant]
  10. RANITIDINE [Concomitant]
  11. SODIUM CHLORIDE INJ [Concomitant]

REACTIONS (1)
  - INTERNATIONAL NORMALISED RATIO INCREASED [None]
